FAERS Safety Report 14982430 (Version 3)
Quarter: 2018Q3

REPORT INFORMATION
  Report Type: Spontaneous
  Country: US (occurrence: US)
  Receive Date: 20180607
  Receipt Date: 20180903
  Transmission Date: 20181010
  Serious: No
  Sender: FDA-Public Use
  Company Number: US-PFIZER INC-2018226846

PATIENT
  Age: 61 Year
  Sex: Female
  Weight: 78 kg

DRUGS (3)
  1. XELJANZ [Suspect]
     Active Substance: TOFACITINIB CITRATE
     Indication: RHEUMATOID ARTHRITIS
     Dosage: 5 MG, 1X/DAY
     Route: 048
     Dates: start: 201803, end: 201803
  2. NAPROXEN. [Concomitant]
     Active Substance: NAPROXEN
     Dosage: UNK, 2X/DAY (500, TWICE A DAY)
  3. METHOTREXATE. [Concomitant]
     Active Substance: METHOTREXATE
     Dosage: 20 MG, WEEKLY (EVERY FRIDAY)

REACTIONS (1)
  - Sinus disorder [Recovering/Resolving]

NARRATIVE: CASE EVENT DATE: 201803
